FAERS Safety Report 26012320 (Version 1)
Quarter: 2025Q4

REPORT INFORMATION
  Report Type: Spontaneous
  Country: EU (occurrence: EU)
  Receive Date: 20251107
  Receipt Date: 20251107
  Transmission Date: 20260118
  Serious: Yes (Other)
  Sender: MYLAN
  Company Number: None

PATIENT
  Age: 63 Year
  Sex: Female
  Weight: 75 kg

DRUGS (4)
  1. PAROXETINE [Suspect]
     Active Substance: PAROXETINE
     Indication: Depression
     Dosage: 10 MILLIGRAM, QD (FILM-COATED SCORED TABLET)PER DAY
     Dates: start: 20250701, end: 20250704
  2. PAROXETINE [Suspect]
     Active Substance: PAROXETINE
     Dosage: 10 MILLIGRAM, QD (FILM-COATED SCORED TABLET)PER DAY
     Route: 048
     Dates: start: 20250701, end: 20250704
  3. PAROXETINE [Suspect]
     Active Substance: PAROXETINE
     Dosage: 10 MILLIGRAM, QD (FILM-COATED SCORED TABLET)PER DAY
     Route: 048
     Dates: start: 20250701, end: 20250704
  4. PAROXETINE [Suspect]
     Active Substance: PAROXETINE
     Dosage: 10 MILLIGRAM, QD (FILM-COATED SCORED TABLET)PER DAY
     Dates: start: 20250701, end: 20250704

REACTIONS (1)
  - Enterocolitis haemorrhagic [Recovered/Resolved]

NARRATIVE: CASE EVENT DATE: 20250704
